FAERS Safety Report 5117382-8 (Version None)
Quarter: 2006Q3

REPORT INFORMATION
  Report Type: 
  Country: None (occurrence: None)
  Receive Date: 20060929
  Receipt Date: 20060920
  Transmission Date: 20061208
  Serious: Yes (Other)
  Sender: FDA-Public Use
  Company Number: NL-JNJFOC-20060905307

PATIENT
  Age: 71 Year
  Sex: Male

DRUGS (5)
  1. REMINYL [Suspect]
     Route: 065
  2. REMINYL [Suspect]
     Indication: DEMENTIA
     Route: 065
  3. RISPERIDONE [Concomitant]
     Route: 065
  4. HYDROCOBALAMINE [Concomitant]
     Route: 065
  5. SIMVASTATIN [Concomitant]
     Route: 065

REACTIONS (3)
  - AFFECT LABILITY [None]
  - AGGRESSION [None]
  - DEPRESSION [None]
